FAERS Safety Report 4743980-7 (Version None)
Quarter: 2005Q3

REPORT INFORMATION
  Report Type: 
  Country: None (occurrence: None)
  Receive Date: 20050811
  Receipt Date: 20050811
  Transmission Date: 20060218
  Serious: Yes (Death, Hospitalization)
  Sender: FDA-Public Use
  Company Number: None

PATIENT
  Sex: Female
  Weight: 59.5 kg

DRUGS (2)
  1. DOCETAXEL [Suspect]
     Indication: NON-SMALL CELL LUNG CANCER
     Dosage: SEE IMAGE
     Route: 042
     Dates: start: 20050214, end: 20050214
  2. DEXAMETHASONE [Suspect]
     Dosage: SEE IMAGE
     Route: 048

REACTIONS (2)
  - DRUG TOXICITY [None]
  - DYSPNOEA [None]
